FAERS Safety Report 24606109 (Version 1)
Quarter: 2024Q4

REPORT INFORMATION
  Report Type: Report from Study
  Country: US (occurrence: US)
  Receive Date: 20241112
  Receipt Date: 20241112
  Transmission Date: 20250114
  Serious: Yes (Other)
  Sender: ABBVIE
  Company Number: US-ABBVIE-5990891

PATIENT
  Age: 76 Year
  Sex: Male

DRUGS (1)
  1. CREON [Suspect]
     Active Substance: PANCRELIPASE AMYLASE\PANCRELIPASE LIPASE\PANCRELIPASE PROTEASE
     Indication: Product used for unknown indication
     Route: 048
     Dates: start: 20240201, end: 20240430

REACTIONS (7)
  - Hernia [Unknown]
  - Abdominal distension [Not Recovered/Not Resolved]
  - Constipation [Unknown]
  - Product lot number issue [Unknown]
  - Parkinson^s disease [Not Recovered/Not Resolved]
  - Unevaluable event [Unknown]
  - Neoplasm malignant [Unknown]

NARRATIVE: CASE EVENT DATE: 20240101
